FAERS Safety Report 19265837 (Version 3)
Quarter: 2021Q3

REPORT INFORMATION
  Report Type: Spontaneous
  Country: TR (occurrence: TR)
  Receive Date: 20210517
  Receipt Date: 20210816
  Transmission Date: 20211014
  Serious: Yes (Other)
  Sender: FDA-Public Use
  Company Number: TR-CLINIGEN GROUP PLC/ CLINIGEN HEALTHCARE LTD-TR-CLGN-21-00237

PATIENT
  Sex: Male
  Weight: 27.9 kg

DRUGS (4)
  1. CARDIOXANE [Suspect]
     Active Substance: DEXRAZOXANE HYDROCHLORIDE
     Indication: FIBROSARCOMA
  2. CARDIOXANE [Suspect]
     Active Substance: DEXRAZOXANE HYDROCHLORIDE
     Indication: ADENOCARCINOMA
  3. ADRIAMYCIN [Concomitant]
     Active Substance: DOXORUBICIN HYDROCHLORIDE
     Indication: CHEMOTHERAPY
  4. HOLOXAN [Concomitant]
     Active Substance: IFOSFAMIDE
     Indication: CHEMOTHERAPY
     Dosage: TOOK 6 CYCLES

REACTIONS (5)
  - Thrombophlebitis [Recovering/Resolving]
  - Application site swelling [Recovered/Resolved]
  - Off label use [Unknown]
  - Application site pain [Recovered/Resolved]
  - Application site erythema [Recovered/Resolved]

NARRATIVE: CASE EVENT DATE: 2021
